FAERS Safety Report 8420858-9 (Version None)
Quarter: 2012Q2

REPORT INFORMATION
  Report Type: 
  Country: None (occurrence: None)
  Receive Date: 20120531
  Receipt Date: 20120529
  Transmission Date: 20120825
  Serious: Yes (Hospitalization, Other)
  Sender: FDA-Public Use
  Company Number: ADR-2012-00229

PATIENT
  Sex: Male

DRUGS (2)
  1. BACLOFEN [Suspect]
     Indication: SPINAL CORD INJURY
     Dosage: 360 MCG/DAY
  2. BACLOFEN [Suspect]
     Indication: MUSCLE SPASTICITY
     Dosage: 360 MCG/DAY

REACTIONS (12)
  - DEVICE DAMAGE [None]
  - IMPLANT SITE INFECTION [None]
  - URINARY TRACT INFECTION [None]
  - DEVICE CONNECTION ISSUE [None]
  - MUSCLE SPASTICITY [None]
  - MENTAL STATUS CHANGES [None]
  - IMPLANT SITE EFFUSION [None]
  - DEVICE ALARM ISSUE [None]
  - DEVICE FAILURE [None]
  - DRUG WITHDRAWAL SYNDROME [None]
  - DEVICE LEAKAGE [None]
  - CONDITION AGGRAVATED [None]
